FAERS Safety Report 5358795-9 (Version None)
Quarter: 2007Q2

REPORT INFORMATION
  Report Type: 
  Country: None (occurrence: None)
  Receive Date: 20070615
  Receipt Date: 20070608
  Transmission Date: 20071010
  Serious: Yes (Hospitalization)
  Sender: FDA-Public Use
  Company Number: US-SOLVAY-00207032351

PATIENT
  Age: 84 Year
  Sex: Male
  Weight: 66 kg

DRUGS (17)
  1. ATENOLOL [Concomitant]
     Indication: ARRHYTHMIA
     Dosage: DAILY DOSE: 50 MILLIGRAM(S)
     Route: 048
     Dates: start: 19900101, end: 20070201
  2. ATENOLOL [Concomitant]
     Dosage: DAILY DOSE: 25 MILLIGRAM(S)
     Route: 048
     Dates: start: 20070201
  3. ACEON [Suspect]
     Indication: HYPERTENSION
     Dosage: DAILY DOSE: 4 MILLIGRAM(S)
     Route: 048
     Dates: start: 20040101
  4. PROSCAR [Concomitant]
     Indication: PROSTATIC DISORDER
     Dosage: DAILY DOSE: 5 MILLIGRAM(S)
     Route: 048
     Dates: start: 19950101
  5. VITEYES VISION [Suspect]
     Indication: MACULAR DEGENERATION
     Dosage: DAILY DOSE: 1 DOSAGE FORM
     Route: 048
     Dates: start: 20020101
  6. METFORMIN HCL [Concomitant]
     Indication: DIABETES MELLITUS NON-INSULIN-DEPENDENT
     Dosage: DAILY DOSE: 2000 MILLIGRAM(S)
     Route: 048
     Dates: start: 19930101
  7. VITAPLEX PLUS [Suspect]
     Indication: BLOOD URINE PRESENT
     Dosage: DAILY DOSE:  UNKNOWN
     Route: 048
     Dates: start: 19800101, end: 20051201
  8. PRANDIN [Concomitant]
     Indication: DIABETES MELLITUS
     Dosage: DAILY DOSE: 1 MILLIGRAM(S)
     Route: 048
     Dates: start: 20010101
  9. CRESTOR [Concomitant]
     Indication: HYPERTENSION
     Dosage: DAILY DOSE: 5 MILLIGRAM(S)
     Route: 048
     Dates: start: 20050101
  10. VALIUM [Concomitant]
     Indication: DEPRESSION
     Dosage: DAILY DOSE: 1 MILLIGRAM(S)
     Route: 048
     Dates: start: 20060101
  11. VITEYES MULTIVITAMIN AREDS [Concomitant]
     Indication: HYPOVITAMINOSIS
     Dosage: DAILY DOSE: 1 DOSAGE FORM
     Route: 048
     Dates: start: 20060101
  12. ASPIRIN [Concomitant]
     Indication: ILL-DEFINED DISORDER
     Dosage: DAILY DOSE: 325 MILLIGRAM(S)
     Route: 048
     Dates: start: 20010101
  13. ALEVE [Concomitant]
     Indication: ILL-DEFINED DISORDER
     Dosage: DAILY DOSE:  UNKNOWN, PRN
     Route: 048
  14. OCEAN [Concomitant]
     Indication: ILL-DEFINED DISORDER
     Dosage: DAILY DOSE:  UNKNOWN, PRN
     Route: 048
     Dates: start: 20050101
  15. BACITRACIN ZINC OITMENT [Concomitant]
     Indication: ILL-DEFINED DISORDER
     Dosage: DAILY DOSE:  UNKNOWN, PRN
     Route: 061
     Dates: start: 20050101
  16. PEPCID [Concomitant]
     Indication: ILL-DEFINED DISORDER
     Dosage: DAILY DOSE: 40 MILLIGRAM(S), PRN
     Route: 048
     Dates: start: 20050101
  17. MIRTAZAPINE [Concomitant]
     Indication: ILL-DEFINED DISORDER
     Dosage: DAILY DOSE:  UNKNOWN
     Route: 048
     Dates: start: 20070101

REACTIONS (12)
  - CATARACT [None]
  - DIARRHOEA [None]
  - DISTURBANCE IN ATTENTION [None]
  - ESSENTIAL TREMOR [None]
  - FALL [None]
  - HYPERVITAMINOSIS [None]
  - MACULOPATHY [None]
  - MALAISE [None]
  - MICTURITION URGENCY [None]
  - SKIN DISCOLOURATION [None]
  - SYNCOPE [None]
  - VOMITING [None]
